FAERS Safety Report 7351631-0 (Version None)
Quarter: 2011Q1

REPORT INFORMATION
  Report Type: 
  Country: None (occurrence: None)
  Receive Date: 20110315
  Receipt Date: 20110307
  Transmission Date: 20110831
  Serious: Yes (Hospitalization)
  Sender: FDA-Public Use
  Company Number: US-BIOGENIDEC-2011BI004495

PATIENT
  Age: 27 Year
  Sex: Female

DRUGS (4)
  1. TYLENOL [Concomitant]
  2. TYSABRI [Suspect]
     Indication: MULTIPLE SCLEROSIS
     Route: 042
     Dates: start: 20100615
  3. ZANAFLEX [Concomitant]
  4. MIDRIN [Concomitant]
     Indication: MIGRAINE WITH AURA

REACTIONS (1)
  - LARGE INTESTINAL ULCER [None]
